FAERS Safety Report 7351977-6 (Version None)
Quarter: 2011Q1

REPORT INFORMATION
  Report Type: 
  Country: None (occurrence: None)
  Receive Date: 20110315
  Receipt Date: 20110311
  Transmission Date: 20110831
  Serious: No
  Sender: FDA-Public Use
  Company Number: US-PFIZER INC-2011054590

PATIENT
  Sex: Female
  Weight: 56.689 kg

DRUGS (1)
  1. NITROSTAT [Suspect]
     Indication: CHEST PAIN
     Dosage: 0.5 MG, AS NEEDED
     Route: 060

REACTIONS (1)
  - DRUG INEFFECTIVE [None]
